FAERS Safety Report 19890382 (Version 2)
Quarter: 2022Q2

REPORT INFORMATION
  Report Type: Spontaneous
  Country: FR (occurrence: FR)
  Receive Date: 20210928
  Receipt Date: 20220429
  Transmission Date: 20220721
  Serious: Yes (Other)
  Sender: FDA-Public Use
  Company Number: FR-SA-SAC20210927001307

PATIENT
  Sex: Female

DRUGS (2)
  1. DUPIXENT [Suspect]
     Active Substance: DUPILUMAB
     Indication: Asthma
     Dosage: 300 MG
     Dates: start: 202105
  2. CORTISONE [Concomitant]
     Active Substance: CORTISONE

REACTIONS (3)
  - Skin necrosis [Unknown]
  - Petechiae [Unknown]
  - Scar [Unknown]

NARRATIVE: CASE EVENT DATE: 20210101
